FAERS Safety Report 21498636 (Version 1)
Quarter: 2022Q4

REPORT INFORMATION
  Report Type: Spontaneous
  Country: US (occurrence: None)
  Receive Date: 20221021
  Receipt Date: 20221021
  Transmission Date: 20230113
  Serious: Yes (Hospitalization)
  Sender: FDA-Public Use
  Company Number: None

PATIENT
  Age: 84 Year
  Sex: Male

DRUGS (1)
  1. ABIRATERONE [Suspect]
     Active Substance: ABIRATERONE
     Dosage: 1000MG DAILY ORAL?
     Route: 048
     Dates: start: 2021

REACTIONS (10)
  - Intestinal obstruction [None]
  - Fall [None]
  - Asthenia [None]
  - Urinary tract infection [None]
  - Fatigue [None]
  - Decreased appetite [None]
  - Weight decreased [None]
  - Metastases to spine [None]
  - Metastases to abdominal cavity [None]
  - Metastases to lymph nodes [None]

NARRATIVE: CASE EVENT DATE: 20220813
